FAERS Safety Report 8118118-9 (Version None)
Quarter: 2012Q1

REPORT INFORMATION
  Report Type: 
  Country: None (occurrence: None)
  Receive Date: 20120207
  Receipt Date: 20120202
  Transmission Date: 20120608
  Serious: No
  Sender: FDA-Public Use
  Company Number: US-PFIZER INC-2012030004

PATIENT
  Sex: Male
  Weight: 159 kg

DRUGS (3)
  1. BACTRIM [Suspect]
     Indication: SINUSITIS
     Dosage: UNK, 2X/DAY
     Dates: start: 20120201
  2. ADVIL COLD AND SINUS [Suspect]
     Indication: COUGH
     Dosage: UNK
     Dates: start: 20120201, end: 20120202
  3. ADVIL COLD AND SINUS [Suspect]
     Indication: SINUSITIS
     Dosage: UNK
     Dates: start: 20110101

REACTIONS (3)
  - SINUS HEADACHE [None]
  - INSOMNIA [None]
  - DYSPNOEA [None]
